FAERS Safety Report 4319313-7 (Version None)
Quarter: 2004Q1

REPORT INFORMATION
  Report Type: 
  Country: None (occurrence: None)
  Receive Date: 20040319
  Receipt Date: 20040312
  Transmission Date: 20041129
  Serious: Yes (Life-Threatening, Hospitalization)
  Sender: FDA-Public Use
  Company Number: PHBS2004BG03422

PATIENT
  Age: 56 Year
  Sex: Female

DRUGS (2)
  1. GLEEVEC [Suspect]
     Indication: GASTROINTESTINAL STROMAL TUMOUR
     Dosage: 400 MG/D
     Route: 048
     Dates: start: 20040129
  2. GLEEVEC [Suspect]
     Dosage: 300 MG/D
     Route: 048
     Dates: end: 20040312

REACTIONS (4)
  - ABDOMINAL PAIN UPPER [None]
  - LEUKOPENIA [None]
  - MYOCARDIAL INFARCTION [None]
  - VOMITING [None]
